FAERS Safety Report 6645517 (Version 2)
Quarter: 2013Q1

REPORT INFORMATION
  Report Type: Spontaneous
  Country: JP (occurrence: None)
  Receive Date: 20080505
  Receipt Date: 20130118
  Transmission Date: 20140127
  Serious: Yes (Hospitalization, Other)
  Sender: FDA-Public Use
  Company Number: 2008AP001077

PATIENT
  Age: 47 Year
  Sex: Male

DRUGS (7)
  1. CARBAMAZEPINE [Suspect]
     Indication: SCHIZOPHRENIA
     Route: 048
     Dates: start: 20050107
  2. CHLORPROMAZINE HYDROCHLORIDE [Concomitant]
  3. METHOTRIMEPRAZINE (METHOTRIMEPRAZINE) [Concomitant]
  4. BIPERIDEN HYDROCHLORIDE [Concomitant]
  5. NITRAZEPAM [Concomitant]
  6. BROMAZEPAM (BROMAZEPAM) [Concomitant]
  7. CLONAZEPAM [Concomitant]

REACTIONS (10)
  - Drug reaction with eosinophilia and systemic symptoms [None]
  - Human herpesvirus 6 infection [None]
  - Lymphadenopathy [None]
  - Hypogammaglobulinaemia [None]
  - Alanine aminotransferase increased [None]
  - Gamma-glutamyltransferase increased [None]
  - Blood lactate dehydrogenase increased [None]
  - Drug ineffective [None]
  - Eosinophilia [None]
  - Lymphoid tissue hyperplasia [None]
